FAERS Safety Report 25823647 (Version 1)
Quarter: 2025Q3

REPORT INFORMATION
  Report Type: Spontaneous
  Country: EG (occurrence: EG)
  Receive Date: 20250919
  Receipt Date: 20250919
  Transmission Date: 20251020
  Serious: Yes (Other)
  Sender: HIKMA
  Company Number: EG-HIKMA PHARMACEUTICALS USA INC.-EG-H14001-25-10512

PATIENT
  Age: 2 Year
  Sex: Male
  Weight: 12 kg

DRUGS (1)
  1. ONDANSETRON [Suspect]
     Active Substance: ONDANSETRON
     Indication: Vomiting
     Route: 041
     Dates: start: 20250815

REACTIONS (4)
  - Erythema [Unknown]
  - Rash [Unknown]
  - Swelling face [Unknown]
  - Feeling hot [Unknown]
